FAERS Safety Report 22068422 (Version 1)
Quarter: 2023Q1

REPORT INFORMATION
  Report Type: Spontaneous
  Country: GB (occurrence: None)
  Receive Date: 20230307
  Receipt Date: 20230307
  Transmission Date: 20230417
  Serious: Yes (Hospitalization, Other)
  Sender: FDA-Public Use
  Company Number: 2023A054307

PATIENT
  Age: 71 Year
  Sex: Female

DRUGS (9)
  1. OMEPRAZOLE [Suspect]
     Active Substance: OMEPRAZOLE
     Dates: start: 20210103, end: 20230224
  2. RAMIPRIL [Suspect]
     Active Substance: RAMIPRIL
  3. OXYBUTYNIN [Suspect]
     Active Substance: OXYBUTYNIN
  4. ATORVASTATIN [Suspect]
     Active Substance: ATORVASTATIN
  5. BISOPROLOL [Suspect]
     Active Substance: BISOPROLOL
  6. ACETAMINOPHEN\CODEINE PHOSPHATE [Suspect]
     Active Substance: ACETAMINOPHEN\CODEINE PHOSPHATE
  7. LETROZOLE [Suspect]
     Active Substance: LETROZOLE
  8. CETIRIZINE [Suspect]
     Active Substance: CETIRIZINE HYDROCHLORIDE
  9. QUININE [Suspect]
     Active Substance: QUININE

REACTIONS (5)
  - Ischaemic stroke [Unknown]
  - Hypocalcaemia [Unknown]
  - Hypokalaemia [Unknown]
  - Hypomagnesaemia [Unknown]
  - Diarrhoea [Unknown]
